FAERS Safety Report 5777142-1 (Version None)
Quarter: 2008Q2

REPORT INFORMATION
  Report Type: 
  Country: None (occurrence: None)
  Receive Date: 20080618
  Receipt Date: 20080611
  Transmission Date: 20081010
  Serious: Yes (Other)
  Sender: FDA-Public Use
  Company Number: US-MERCK-0806USA01025

PATIENT
  Age: 80 Year
  Sex: Male

DRUGS (5)
  1. JANUVIA [Suspect]
     Indication: TYPE 2 DIABETES MELLITUS
     Route: 048
     Dates: start: 20070101, end: 20080603
  2. BYETTA [Concomitant]
     Route: 065
  3. SYNTHROID [Concomitant]
     Route: 065
  4. EXTENDRYL [Concomitant]
     Route: 065
  5. AVODART [Concomitant]
     Route: 065

REACTIONS (2)
  - ARTHROPATHY [None]
  - OEDEMA PERIPHERAL [None]
